FAERS Safety Report 18802225 (Version 4)
Quarter: 2024Q4

REPORT INFORMATION
  Report Type: Spontaneous
  Country: US (occurrence: US)
  Receive Date: 20210128
  Receipt Date: 20241212
  Transmission Date: 20250114
  Serious: No
  Sender: PFIZER
  Company Number: US-PFIZER INC-2021064306

PATIENT
  Age: 64 Year
  Sex: Female

DRUGS (5)
  1. IBRANCE [Suspect]
     Active Substance: PALBOCICLIB
     Dosage: 125 MG, CYCLIC (1 QD (ONCE A DAY) FOR 21 DAYS, THEN 7 DAYS OFF)
     Dates: start: 20200214
  2. IBRANCE [Suspect]
     Active Substance: PALBOCICLIB
     Dosage: 125 MG, CYCLIC [QD (EVERY DAY) X 21 DAYS]
     Route: 048
     Dates: start: 20200220
  3. IBRANCE [Suspect]
     Active Substance: PALBOCICLIB
     Dosage: 100 MG
  4. IBRANCE [Suspect]
     Active Substance: PALBOCICLIB
     Dosage: 125 MG, CYCLIC [QD (EVERY DAY) X 21 DAYS]
     Route: 048
     Dates: start: 20200225
  5. IBRANCE [Suspect]
     Active Substance: PALBOCICLIB
     Dosage: 75 MG, CYCLIC (1 DAILY FOR 21 DAYS AND 7 DAYS OFF)
     Route: 048

REACTIONS (2)
  - Alopecia [Unknown]
  - Fatigue [Unknown]
